FAERS Safety Report 14233927 (Version 2)
Quarter: 2017Q4

REPORT INFORMATION
  Report Type: Report from Study
  Country: US (occurrence: BR)
  Receive Date: 20171129
  Receipt Date: 20171229
  Transmission Date: 20180321
  Serious: Yes (Other)
  Sender: FDA-Public Use
  Company Number: US-SUNOVION-2017SUN005092

PATIENT
  Sex: Male
  Weight: 60 kg

DRUGS (3)
  1. INDACATEROL AND GLYCOPYRROLATE [Suspect]
     Active Substance: GLYCOPYRROLATE\INDACATEROL MALEATE
     Indication: EMPHYSEMA
  2. TROK [Concomitant]
  3. INDACATEROL AND GLYCOPYRROLATE [Suspect]
     Active Substance: GLYCOPYRROLATE\INDACATEROL MALEATE
     Indication: CHRONIC OBSTRUCTIVE PULMONARY DISEASE
     Dosage: 1 DF (GLYCOPYRRONIUM BROMIDE 50UG/INDACTEROL 110 UG), QD
     Route: 055
     Dates: end: 20171116

REACTIONS (5)
  - Pruritus generalised [Recovering/Resolving]
  - Cough [Unknown]
  - Urticaria [Not Recovered/Not Resolved]
  - Hypersensitivity [Recovering/Resolving]
  - Productive cough [Unknown]
